FAERS Safety Report 9921890 (Version 2)
Quarter: 2014Q1

REPORT INFORMATION
  Report Type: Spontaneous
  Country: BG (occurrence: BG)
  Receive Date: 20140225
  Receipt Date: 20140307
  Transmission Date: 20141002
  Serious: Yes (Death, Life-Threatening, Hospitalization)
  Sender: FDA-Public Use
  Company Number: BG-BRISTOL-MYERS SQUIBB COMPANY-20243499

PATIENT
  Age: 69 Year
  Sex: Male

DRUGS (5)
  1. ELIQUIS [Suspect]
     Indication: ATRIAL FIBRILLATION
     Dates: start: 20140115, end: 20140206
  2. CORDARONE [Concomitant]
  3. TRIFAS [Concomitant]
  4. CANDESARTAN [Concomitant]
  5. CONCOR [Concomitant]

REACTIONS (2)
  - Cardiac failure [Fatal]
  - Haematemesis [Recovered/Resolved]
